FAERS Safety Report 6487391-5 (Version None)
Quarter: 2009Q4

REPORT INFORMATION
  Report Type: 
  Country: None (occurrence: None)
  Receive Date: 20091210
  Receipt Date: 20091201
  Transmission Date: 20100525
  Serious: Yes (Other)
  Sender: FDA-Public Use
  Company Number: DE-AMGEN-US378470

PATIENT
  Age: 65 Year
  Sex: Female

DRUGS (4)
  1. ENBREL [Suspect]
     Indication: SCLERODERMA
     Route: 058
     Dates: start: 20090311
  2. ILOMEDIN [Concomitant]
     Dosage: UNKNOWN
     Route: 065
     Dates: end: 20090101
  3. PREDNISOLONE [Concomitant]
     Route: 048
     Dates: end: 20090101
  4. PREDNISOLONE [Concomitant]
     Dosage: UNKNOWN
     Route: 048
     Dates: start: 20090101

REACTIONS (6)
  - ARTHRALGIA [None]
  - BLOOD TEST ABNORMAL [None]
  - CARDIAC DISORDER [None]
  - CONDITION AGGRAVATED [None]
  - HERPES ZOSTER [None]
  - IMPAIRED HEALING [None]
